FAERS Safety Report 24830741 (Version 1)
Quarter: 2025Q1

REPORT INFORMATION
  Report Type: Spontaneous
  Country: US (occurrence: US)
  Receive Date: 20250110
  Receipt Date: 20250110
  Transmission Date: 20250408
  Serious: Yes (Hospitalization, Other)
  Sender: OPTINOSE INC
  Company Number: US-OptiNose US, Inc-2025OPT000001

PATIENT
  Age: 76 Year
  Sex: Male

DRUGS (2)
  1. XHANCE [Suspect]
     Active Substance: FLUTICASONE PROPIONATE
     Indication: Product used for unknown indication
     Dosage: 2 SPRAYS IN EACH NOSTRIL TWICE DAILY FOR 2 DAYS
     Route: 045
     Dates: start: 202412, end: 202412
  2. XHANCE [Suspect]
     Active Substance: FLUTICASONE PROPIONATE
     Dosage: REDUCED TO 1 SPRAY IN EACH NOSTRIL TWICE DAILY
     Route: 045
     Dates: start: 202412, end: 202412

REACTIONS (5)
  - Myocardial infarction [Recovered/Resolved]
  - Agitation [Recovered/Resolved]
  - Aggression [Recovered/Resolved]
  - Bacterial infection [Unknown]
  - Fungal rhinitis [Unknown]

NARRATIVE: CASE EVENT DATE: 20241201
